FAERS Safety Report 11116069 (Version 2)
Quarter: 2015Q2

REPORT INFORMATION
  Report Type: Spontaneous
  Country: US (occurrence: US)
  Receive Date: 20150515
  Receipt Date: 20150601
  Transmission Date: 20150821
  Serious: No
  Sender: FDA-Public Use
  Company Number: US-PFIZER INC-2015089505

PATIENT
  Age: 12 Year
  Sex: Female
  Weight: 49 kg

DRUGS (2)
  1. DESVENLAFAXINE SUCCINATE MONOHYDRATE [Concomitant]
     Active Substance: DESVENLAFAXINE
     Indication: MAJOR DEPRESSION
     Dosage: 50 MG, DAILY
     Dates: start: 20140903, end: 20150302
  2. DOXYCYCLINE HYCLATE. [Suspect]
     Active Substance: DOXYCYCLINE HYCLATE
     Dosage: APPROXIMATELY 30 CAPSULES OF 100 MG SINGLE
     Route: 048
     Dates: start: 20150303, end: 20150303

REACTIONS (1)
  - Overdose [Recovered/Resolved]

NARRATIVE: CASE EVENT DATE: 20150303
